FAERS Safety Report 9835222 (Version 1)
Quarter: 2014Q1

REPORT INFORMATION
  Report Type: Spontaneous
  Country: US (occurrence: US)
  Receive Date: 20140122
  Receipt Date: 20140122
  Transmission Date: 20141002
  Serious: No
  Sender: FDA-Public Use
  Company Number: US-BRISTOL-MYERS SQUIBB COMPANY-19875343

PATIENT
  Age: 70 Year
  Sex: Female
  Weight: 126.98 kg

DRUGS (4)
  1. ELIQUIS [Suspect]
     Indication: ATRIAL FIBRILLATION
  2. ATENOLOL [Concomitant]
  3. SYNTHROID [Concomitant]
  4. RANITIDINE [Concomitant]

REACTIONS (2)
  - Tooth disorder [Unknown]
  - Chest discomfort [Unknown]
